FAERS Safety Report 26161226 (Version 1)
Quarter: 2025Q4

REPORT INFORMATION
  Report Type: Spontaneous
  Country: US (occurrence: US)
  Receive Date: 20251216
  Receipt Date: 20251216
  Transmission Date: 20260117
  Serious: No
  Sender: REDHILL BIOPHARMA
  Company Number: US-RDH-RDH202509-000016

PATIENT
  Sex: Female

DRUGS (1)
  1. TALICIA [Suspect]
     Active Substance: AMOXICILLIN\OMEPRAZOLE MAGNESIUM\RIFABUTIN
     Indication: Product used for unknown indication
     Route: 065
     Dates: start: 20250830

REACTIONS (2)
  - Rash [Unknown]
  - Diarrhoea [Unknown]
